FAERS Safety Report 6740762-1 (Version None)
Quarter: 2010Q2

REPORT INFORMATION
  Report Type: 
  Country: None (occurrence: None)
  Receive Date: 20100524
  Receipt Date: 20100513
  Transmission Date: 20101027
  Serious: Yes (Hospitalization, Other)
  Sender: FDA-Public Use
  Company Number: 2010SP021637

PATIENT
  Age: 56 Year
  Sex: Female

DRUGS (2)
  1. PEG-INTRON [Suspect]
     Indication: DRUG USE FOR UNKNOWN INDICATION
     Dosage: 100 MCG; QW; SC
     Route: 058
     Dates: start: 20100201
  2. RIBAVIRIN [Suspect]
     Indication: DRUG USE FOR UNKNOWN INDICATION
     Dosage: 1000 MG QD
     Dates: start: 20100201

REACTIONS (4)
  - ANAEMIA [None]
  - HAEMOGLOBIN DECREASED [None]
  - INTRACRANIAL ANEURYSM [None]
  - TRANSIENT ISCHAEMIC ATTACK [None]
